FAERS Safety Report 7295098-X (Version None)
Quarter: 2011Q1

REPORT INFORMATION
  Report Type: 
  Country: None (occurrence: None)
  Receive Date: 20110211
  Receipt Date: 20110211
  Transmission Date: 20110831
  Serious: Yes (Other)
  Sender: FDA-Public Use
  Company Number: None

PATIENT
  Sex: Female
  Weight: 96.1626 kg

DRUGS (1)
  1. PROPRANOLOL [Suspect]
     Dosage: 120 MG BID ORAL
     Route: 048
     Dates: start: 20070102, end: 20070127

REACTIONS (4)
  - DIZZINESS [None]
  - ALOPECIA [None]
  - RASH [None]
  - FEELING HOT [None]
